FAERS Safety Report 4922023-6 (Version None)
Quarter: 2006Q1

REPORT INFORMATION
  Report Type: 
  Country: None (occurrence: None)
  Receive Date: 20060221
  Receipt Date: 20060209
  Transmission Date: 20060701
  Serious: Yes (Hospitalization, Other)
  Sender: FDA-Public Use
  Company Number: 2006020736

PATIENT
  Age: 86 Year
  Sex: Male
  Weight: 71.6683 kg

DRUGS (1)
  1. QUINAPRIL HCL [Suspect]
     Indication: ILL-DEFINED DISORDER
     Dosage: 20 MG (20 MG, 1 IN 24 HR)

REACTIONS (4)
  - ARTERIAL OCCLUSIVE DISEASE [None]
  - LOCAL SWELLING [None]
  - MYOCARDIAL INFARCTION [None]
  - POST PROCEDURAL COMPLICATION [None]
